FAERS Safety Report 14967408 (Version 1)
Quarter: 2018Q2

REPORT INFORMATION
  Report Type: Spontaneous
  Country: FR (occurrence: FR)
  Receive Date: 20180604
  Receipt Date: 20180604
  Transmission Date: 20180711
  Serious: Yes (Other)
  Sender: FDA-Public Use
  Company Number: FR-TEVA-2018-FR-901239

PATIENT
  Age: 65 Year
  Sex: Female

DRUGS (10)
  1. KETOPROFENE [Suspect]
     Active Substance: KETOPROFEN
     Indication: PYREXIA
     Dosage: 200 MILLIGRAM DAILY; 200 MG LP ? MIDI
     Route: 048
     Dates: start: 20161019, end: 20180312
  2. GARDENAL [Concomitant]
     Active Substance: PHENOBARBITAL
     Route: 065
  3. EXACYL [Concomitant]
     Active Substance: TRANEXAMIC ACID
     Route: 065
  4. RETACRIT [Concomitant]
     Active Substance: EPOETIN ALFA-EPBX
     Route: 065
  5. KADCYLA [Suspect]
     Active Substance: ADO-TRASTUZUMAB EMTANSINE
     Indication: BREAST CANCER
     Route: 042
     Dates: start: 20180309, end: 20180309
  6. ESOMEPRAZOLE [Concomitant]
     Active Substance: ESOMEPRAZOLE
     Route: 065
  7. PREGABALINE [Concomitant]
     Active Substance: PREGABALIN
     Route: 065
  8. FOLIC ACID. [Concomitant]
     Active Substance: FOLIC ACID
     Route: 065
  9. TRAMADOL (CHLORHYDRATE DE) [Concomitant]
     Active Substance: TRAMADOL HYDROCHLORIDE
     Route: 065
  10. DEDROGYL [Concomitant]
     Active Substance: CALCIFEDIOL
     Route: 065

REACTIONS (1)
  - Hypokalaemia [Recovered/Resolved]

NARRATIVE: CASE EVENT DATE: 20180313
